FAERS Safety Report 12109638 (Version 1)
Quarter: 2016Q1

REPORT INFORMATION
  Report Type: Spontaneous
  Country: JP (occurrence: JP)
  Receive Date: 20160224
  Receipt Date: 20160224
  Transmission Date: 20160526
  Serious: Yes (Death, Disabling, Other)
  Sender: FDA-Public Use
  Company Number: JP-GLAXOSMITHKLINE-JP2016JPN006968

PATIENT
  Age: 83 Year
  Sex: Female
  Weight: 39 kg

DRUGS (9)
  1. VALTREX [Suspect]
     Active Substance: VALACYCLOVIR HYDROCHLORIDE
     Indication: HERPES ZOSTER
     Dosage: 500 MG, TID
     Route: 048
     Dates: start: 20160108, end: 20160114
  2. ALFACALCIDOL [Concomitant]
     Active Substance: ALFACALCIDOL
     Dosage: 0.5 ?G, QD
  3. TRAZENTA [Concomitant]
     Active Substance: LINAGLIPTIN
     Dosage: 5 MG, QD
  4. PREDONINE [Concomitant]
     Active Substance: PREDNISOLONE\PREDNISOLONE ACETATE\PREDNISOLONE SODIUM SUCCINATE
     Indication: VASCULITIS
     Dosage: UNK, BID
  5. NEXIUM [Concomitant]
     Active Substance: ESOMEPRAZOLE MAGNESIUM
     Dosage: 20 MG, QD
  6. EXELON [Concomitant]
     Active Substance: RIVASTIGMINE TARTRATE
     Dosage: 18 MG, QD
  7. FEXOFENADINE HYDROCHLORIDE. [Concomitant]
     Active Substance: FEXOFENADINE HYDROCHLORIDE
     Dosage: 60 MG, BID
  8. FUROSEMIDE. [Concomitant]
     Active Substance: FUROSEMIDE
     Dosage: 20 MG, QD
  9. URSO [Concomitant]
     Active Substance: URSODIOL
     Dosage: 100 MG, TID

REACTIONS (7)
  - Respiratory failure [Unknown]
  - Hypophagia [Unknown]
  - Altered state of consciousness [Fatal]
  - Haemoptysis [Unknown]
  - Blood creatinine abnormal [Unknown]
  - Acute kidney injury [Fatal]
  - Pulmonary alveolar haemorrhage [Unknown]

NARRATIVE: CASE EVENT DATE: 201601
